FAERS Safety Report 8539089-7 (Version None)
Quarter: 2012Q2

REPORT INFORMATION
  Report Type: 
  Country: None (occurrence: None)
  Receive Date: 20120416
  Receipt Date: 20090411
  Transmission Date: 20120825
  Serious: Yes (Other)
  Sender: FDA-Public Use
  Company Number: PHEH2009US04635

PATIENT
  Sex: Female

DRUGS (2)
  1. DIOVAN [Suspect]
  2. TRIAMTERENE (TRIAMTERENE) [Concomitant]

REACTIONS (1)
  - HYPOTENSION [None]
